FAERS Safety Report 15831150 (Version 6)
Quarter: 2019Q1

REPORT INFORMATION
  Report Type: Report from Study
  Country: US (occurrence: US)
  Receive Date: 20190116
  Receipt Date: 20190315
  Transmission Date: 20190417
  Serious: Yes (Other)
  Sender: FDA-Public Use
  Company Number: US-PFIZER INC-2019019972

PATIENT
  Age: 92 Year
  Sex: Female

DRUGS (2)
  1. IBRANCE [Suspect]
     Active Substance: PALBOCICLIB
     Indication: BREAST CANCER
     Dosage: 75 MG, CYCLIC [ONCE DAILY, (QD), 21 DAYS ON, 7 DAYS OFF]
     Route: 048
     Dates: start: 20190107
  2. MUCINEX [Concomitant]
     Active Substance: GUAIFENESIN
     Dosage: UNK

REACTIONS (10)
  - Bronchitis [Recovered/Resolved]
  - Fatigue [Unknown]
  - Pain [Unknown]
  - Epistaxis [Unknown]
  - Peripheral coldness [Unknown]
  - Haemorrhage [Not Recovered/Not Resolved]
  - Cough [Recovering/Resolving]
  - Pruritus [Recovered/Resolved]
  - Anxiety [Unknown]
  - Urinary tract infection [Recovered/Resolved]

NARRATIVE: CASE EVENT DATE: 2019
